FAERS Safety Report 22939827 (Version 2)
Quarter: 2023Q4

REPORT INFORMATION
  Report Type: Spontaneous
  Country: DE (occurrence: DE)
  Receive Date: 20230913
  Receipt Date: 20231102
  Transmission Date: 20240109
  Serious: Yes (Hospitalization)
  Sender: FDA-Public Use
  Company Number: None

PATIENT
  Age: 33 Year
  Sex: Female
  Weight: 52 kg

DRUGS (101)
  1. ACTRAPID [Suspect]
     Active Substance: INSULIN HUMAN
     Dosage: UNK
     Route: 041
     Dates: start: 20011124, end: 20011202
  2. ACTRAPID [Suspect]
     Active Substance: INSULIN HUMAN
     Indication: Metabolic disorder
     Dosage: UNK
     Route: 065
     Dates: start: 20011124, end: 20011202
  3. AMOXICILLIN\CLAVULANATE POTASSIUM [Suspect]
     Active Substance: AMOXICILLIN\CLAVULANATE POTASSIUM
     Indication: Infection
     Dosage: 6.6 G (3 SEPARATED DOSES)
     Route: 042
     Dates: start: 20011121, end: 20011123
  4. LACTULOSE [Suspect]
     Active Substance: LACTULOSE
     Indication: Constipation
     Dosage: 240 ML (4 SEPARATED DOSES)
     Route: 048
     Dates: start: 20011128, end: 20011205
  5. CIPROFLOXACIN HYDROCHLORIDE [Suspect]
     Active Substance: CIPROFLOXACIN HYDROCHLORIDE
     Dosage: 400 MG (2 SEPARATED DOSES)
     Route: 041
     Dates: start: 20011121, end: 20011123
  6. CIPROFLOXACIN HYDROCHLORIDE [Suspect]
     Active Substance: CIPROFLOXACIN HYDROCHLORIDE
     Indication: Infection
     Dosage: 400 MG (2 SEPARATED DOSES)
     Route: 042
     Dates: start: 20011121, end: 20011123
  7. CLAFORAN [Suspect]
     Active Substance: CEFOTAXIME SODIUM
     Indication: Infection
     Dosage: 6 G (3 SEPARATED DOSES)
     Route: 042
     Dates: start: 20011130, end: 20011201
  8. CLONAZEPAM [Suspect]
     Active Substance: CLONAZEPAM
     Indication: Epilepsy
     Dosage: 1 MG, PRN
     Route: 048
     Dates: start: 20011112, end: 20011205
  9. CLONIDINE [Suspect]
     Active Substance: CLONIDINE
     Dosage: UNK (UNIT DOSE 6 AMPULE)
     Route: 041
     Dates: start: 20011205
  10. CLONIDINE [Suspect]
     Active Substance: CLONIDINE
     Indication: Hypertension
     Dosage: UNK (UNIT DOSE 6 AMPULE)
     Route: 042
     Dates: start: 20011205
  11. SULFAMETHOXAZOLE\TRIMETHOPRIM [Suspect]
     Active Substance: SULFAMETHOXAZOLE\TRIMETHOPRIM
     Indication: Infection
     Dosage: 1920 MG (2 SEPARATED DOSES)
     Route: 042
     Dates: start: 20011116, end: 20011120
  12. DIFLUCAN [Suspect]
     Active Substance: FLUCONAZOLE
     Indication: Candida infection
     Dosage: UNK
     Route: 042
     Dates: start: 20011118, end: 20011120
  13. MIDAZOLAM MALEATE [Suspect]
     Active Substance: MIDAZOLAM MALEATE
     Indication: Pain
     Dosage: UNK
     Route: 048
     Dates: start: 20011113, end: 20011117
  14. FERRLECIT [Suspect]
     Active Substance: SODIUM FERRIC GLUCONATE COMPLEX
     Indication: Iron deficiency
     Dosage: UNK (DAILY DOSE 1 AMPULE)
     Route: 042
     Dates: start: 20011205, end: 20011205
  15. FOSFOMYCIN SODIUM [Suspect]
     Active Substance: FOSFOMYCIN SODIUM
     Indication: Infection
     Dosage: UNK
     Route: 065
     Dates: start: 20011130, end: 20011205
  16. NADROPARIN CALCIUM [Suspect]
     Active Substance: NADROPARIN CALCIUM
     Indication: Thrombosis prophylaxis
     Dosage: UNK
     Route: 058
     Dates: start: 20011117, end: 20011124
  17. HEPARIN SODIUM [Suspect]
     Active Substance: HEPARIN SODIUM
     Indication: Thrombosis prophylaxis
     Dosage: UNK
     Route: 065
     Dates: start: 20011126, end: 20011203
  18. ORNITHINE ASPARTATE [Suspect]
     Active Substance: ORNITHINE ASPARTATE
     Indication: Liver disorder
     Dosage: 4 DOSAGE FORM (4 SEPARATED DOSES)
     Route: 048
     Dates: start: 20011124, end: 20011128
  19. KETAMINE HYDROCHLORIDE [Suspect]
     Active Substance: KETAMINE HYDROCHLORIDE
     Indication: Stupor
     Dosage: UNK
     Route: 065
     Dates: start: 20011205, end: 20011205
  20. LAMICTAL [Suspect]
     Active Substance: LAMOTRIGINE
     Indication: Epilepsy
     Dosage: 12.5 MG, QD (37.5 MG (3 SEPARATED DOSES))
     Route: 048
     Dates: start: 20011112, end: 20011118
  21. LAMICTAL [Suspect]
     Active Substance: LAMOTRIGINE
     Dosage: 37.5 MG, QD (3 SEPARATED DOSES)
     Route: 048
     Dates: start: 20011118, end: 20011124
  22. LASIX [Suspect]
     Active Substance: FUROSEMIDE
     Indication: Oedema
     Dosage: UNK
     Route: 065
     Dates: end: 20011126
  23. EGG PHOSPHOLIPIDS\GLYCERIN\SOYBEAN OIL [Suspect]
     Active Substance: EGG PHOSPHOLIPIDS\GLYCERIN\SOYBEAN OIL
     Indication: Parenteral nutrition
     Dosage: 250 ML, PRN
     Route: 042
     Dates: start: 20011121, end: 20011205
  24. EGG PHOSPHOLIPIDS\GLYCERIN\SOYBEAN OIL [Suspect]
     Active Substance: EGG PHOSPHOLIPIDS\GLYCERIN\SOYBEAN OIL
     Dosage: 250 ML, PRN
     Route: 041
     Dates: start: 20011121, end: 20011205
  25. NOVALGIN (METAMIZOLE SODIUM) [Suspect]
     Active Substance: METAMIZOLE SODIUM
     Indication: Pain
     Dosage: 2 G, PRN
     Route: 042
     Dates: start: 20011128, end: 20011202
  26. DIGOXIN [Suspect]
     Active Substance: DIGOXIN
     Indication: Cardiac failure
     Dosage: 0.2 MG
     Route: 042
     Dates: start: 20011121, end: 20011202
  27. RANITIDINE [Suspect]
     Active Substance: RANITIDINE
     Indication: Prophylaxis
     Dosage: UNK
     Route: 042
     Dates: start: 20011123, end: 20011126
  28. THEOPHYLLINE [Suspect]
     Active Substance: THEOPHYLLINE
     Indication: Bronchospasm
     Dosage: 6 MG, QH
     Route: 042
     Dates: start: 20011205
  29. TAVOR (LORAZEPAM) [Suspect]
     Active Substance: LORAZEPAM
     Indication: Agitation
     Dosage: 3 MG (3 SEPARATED DOSES)
     Route: 048
     Dates: start: 20011118, end: 20011202
  30. URSODIOL [Suspect]
     Active Substance: URSODIOL
     Indication: Cholelithiasis
     Dosage: 3 DOSAGE FORM, QD (3 SEPARATED DOSES)
     Route: 048
     Dates: start: 20011123, end: 20011128
  31. URSODIOL [Suspect]
     Active Substance: URSODIOL
     Indication: Cholelithiasis
     Dosage: 3 DOSAGE FORM
     Route: 065
     Dates: start: 20011123, end: 20011128
  32. AKINETON [Concomitant]
     Active Substance: BIPERIDEN HYDROCHLORIDE
     Dosage: 5 MG, QD 2 (SEPARATED DOSES)
     Route: 040
     Dates: end: 20011113
  33. AKINETON [Concomitant]
     Active Substance: BIPERIDEN HYDROCHLORIDE
     Indication: Extrapyramidal disorder
     Dosage: 5 MG, QD, (2 SEPARATED DOSES)
     Route: 041
     Dates: end: 20011113
  34. NOREPINEPHRINE HYDROCHLORIDE, (+/-)- [Concomitant]
     Active Substance: NOREPINEPHRINE HYDROCHLORIDE, (+/-)-
     Dosage: UNK
     Route: 040
     Dates: start: 20011109, end: 20011203
  35. NOREPINEPHRINE HYDROCHLORIDE, (+/-)- [Concomitant]
     Active Substance: NOREPINEPHRINE HYDROCHLORIDE, (+/-)-
     Indication: Shock
     Dosage: UNK
     Route: 065
     Dates: start: 20011109, end: 20011203
  36. Atosil [Concomitant]
     Dosage: 150 MG, QD (6 SEPARATED DOSES)
     Route: 040
     Dates: end: 20011111
  37. Atosil [Concomitant]
     Indication: Agitation
     Dosage: 150 MG (6 SEPARATED DOSES)
     Route: 042
     Dates: end: 20011111
  38. BRICANYL [Concomitant]
     Active Substance: TERBUTALINE SULFATE
     Dosage: UNK, PRN, 5 AMPULE
     Route: 040
     Dates: end: 20011112
  39. BRICANYL [Concomitant]
     Active Substance: TERBUTALINE SULFATE
     Indication: Respiratory tract congestion
     Dosage: UNK, PRN, 5 AMPULE
     Route: 041
     Dates: end: 20011112
  40. BRICANYL [Concomitant]
     Active Substance: TERBUTALINE SULFATE
     Indication: Obstructive airways disorder
     Dosage: UNK, PRNFREQUENCY: PRN. UNIT DOSE=.5 AMPULE
     Route: 042
     Dates: end: 20011112
  41. CALCIUM [Concomitant]
     Active Substance: CALCIUM
     Indication: Calcium deficiency
     Dosage: 10 ML, QD (10 ML / DAY OF 20% AMPOULE WAS DISCONTINUED)
     Route: 042
     Dates: end: 20011126
  42. CALCIUM [Concomitant]
     Active Substance: CALCIUM
     Dosage: 10 ML, QD (10 ML / DAY OF 20% AMPOULE WAS DISCONTINUED)
     Route: 040
     Dates: end: 20011126
  43. CALCIUM [Concomitant]
     Active Substance: CALCIUM
     Dosage: 10 ML, QD (10 ML / DAY OF 20% AMPOULE WAS DISCONTINUED)
     Route: 041
     Dates: end: 20011126
  44. CALCIUM [Concomitant]
     Active Substance: CALCIUM
     Dosage: UNK (1 AMPULE OF)
     Route: 040
     Dates: start: 20011205
  45. CALCIUM [Concomitant]
     Active Substance: CALCIUM
     Dosage: UNK (1 AMPULE OF)
     Route: 041
     Dates: start: 20011205
  46. CALCIUM [Concomitant]
     Active Substance: CALCIUM
     Indication: Calcium deficiency
     Dosage: UNK (1 AMPULE OF)
     Route: 042
     Dates: start: 20011205
  47. CALCIUM [Concomitant]
     Active Substance: CALCIUM
     Dosage: DOSAGE REGIMEN:26 NOV 2001:10 ML / DAY OF 20% AMPOULE WAS DISCONTINUED. 05 DEC 2001: 1 AMPOULE OF+
     Route: 041
  48. Clont [Concomitant]
     Dosage: 1500 MG
     Route: 040
     Dates: start: 20011115, end: 20011120
  49. Clont [Concomitant]
     Indication: Infection
     Dosage: 1500 MG
     Route: 065
     Dates: start: 20011115, end: 20011120
  50. PREDNISOLONE [Concomitant]
     Active Substance: PREDNISOLONE
     Indication: Colitis ulcerative
     Dosage: UNK
     Route: 042
     Dates: end: 20011205
  51. PREDNISOLONE [Concomitant]
     Active Substance: PREDNISOLONE
     Dosage: UNK
     Route: 040
     Dates: end: 20011205
  52. PIRITRAMIDE [Concomitant]
     Active Substance: PIRITRAMIDE
     Dosage: 3 MG, QD
     Route: 040
     Dates: end: 20011121
  53. PIRITRAMIDE [Concomitant]
     Active Substance: PIRITRAMIDE
     Indication: Pain
     Dosage: 3 MG, QD
     Route: 042
     Dates: end: 20011121
  54. PIRITRAMIDE [Concomitant]
     Active Substance: PIRITRAMIDE
     Dosage: 3 MG, TID
     Route: 042
     Dates: start: 20011205
  55. PIRITRAMIDE [Concomitant]
     Active Substance: PIRITRAMIDE
     Dosage: 3 MG, TID
     Route: 040
     Dates: start: 20011205
  56. DOBUTAMINE HYDROCHLORIDE [Concomitant]
     Active Substance: DOBUTAMINE HYDROCHLORIDE
     Dosage: 250 MG
     Route: 040
     Dates: start: 20011121, end: 20011121
  57. DOBUTAMINE HYDROCHLORIDE [Concomitant]
     Active Substance: DOBUTAMINE HYDROCHLORIDE
     Indication: Cardiac failure
     Dosage: 250 MG
     Route: 042
     Dates: start: 20011121, end: 20011121
  58. VALPROIC ACID [Concomitant]
     Active Substance: VALPROIC ACID
     Dosage: 800 MG, QD (2 SEPARATED DOSES)
     Route: 040
     Dates: end: 20011115
  59. VALPROIC ACID [Concomitant]
     Active Substance: VALPROIC ACID
     Indication: Epilepsy
     Dosage: 800 MG (2 SEPARATED DOSES)
     Route: 042
     Dates: end: 20011115
  60. FENTANYL [Concomitant]
     Active Substance: FENTANYL\FENTANYL CITRATE
     Dosage: 1.5 MG (DOSE WAS ALSO REPORTED AS 1.5 MG. DAILY DOSE 3 AMPULE)
     Route: 040
     Dates: start: 20011120, end: 20011120
  61. FENTANYL [Concomitant]
     Active Substance: FENTANYL\FENTANYL CITRATE
     Dosage: 1.5 MG (DOSE WAS ALSO REPORTED AS 1.5 MG. DAILY DOSE 3 AMPULE)
     Route: 041
     Dates: start: 20011120, end: 20011120
  62. FENTANYL [Concomitant]
     Active Substance: FENTANYL\FENTANYL CITRATE
     Indication: Pain
     Dosage: 1.5 MG (DOSE WAS ALSO REPORTED AS 1.5 MG. DAILY DOSE 3 AMPULE)
     Route: 042
     Dates: start: 20011120, end: 20011120
  63. Ferro-folsan [Concomitant]
     Indication: Iron deficiency
     Dosage: 40 DROP (1/12 MILLILITRE)
     Route: 065
     Dates: end: 20011128
  64. DEXTROSE [Concomitant]
     Active Substance: DEXTROSE\DEXTROSE MONOHYDRATE
     Indication: Fluid replacement
     Dosage: UNK (5 PERCENT AT 2000 ML / DAY, 40 PERCENT , AT 500 ML / DAY AND 70 PERCENT AT 2000 ML /DAY.)
     Route: 040
     Dates: end: 20011205
  65. DEXTROSE [Concomitant]
     Active Substance: DEXTROSE\DEXTROSE MONOHYDRATE
     Indication: Fluid replacement
     Dosage: UNK (5 PERCENT AT 2000 ML / DAY, 40 PERCENT , AT 500 ML / DAY AND 70 PERCENT AT 2000 ML /DAY.)
     Route: 042
     Dates: end: 20011205
  66. HEPARIN [Concomitant]
     Active Substance: HEPARIN SODIUM
     Indication: Thrombosis prophylaxis
     Dosage: UNK
     Route: 065
     Dates: start: 20011109, end: 20011109
  67. ALBUMIN HUMAN [Concomitant]
     Active Substance: ALBUMIN HUMAN
     Indication: Fluid replacement
     Dosage: 100 ML
     Route: 065
     Dates: end: 20011116
  68. ALBUMIN HUMAN [Concomitant]
     Active Substance: ALBUMIN HUMAN
     Dosage: 100 ML
     Route: 040
     Dates: end: 20011116
  69. ALBUMIN HUMAN [Concomitant]
     Active Substance: ALBUMIN HUMAN
     Dosage: 200 ML
     Route: 065
     Dates: start: 20011121, end: 20011124
  70. ALBUMIN HUMAN [Concomitant]
     Active Substance: ALBUMIN HUMAN
     Dosage: 200 ML
     Route: 040
     Dates: start: 20011121, end: 20011124
  71. ALBUMIN HUMAN [Concomitant]
     Active Substance: ALBUMIN HUMAN
     Dosage: 200 ML
     Route: 065
     Dates: start: 20011121, end: 20011124
  72. IRON [Concomitant]
     Active Substance: IRON
     Dosage: UNK (DAILY DOSE=1 AMPULE)
     Route: 041
     Dates: end: 20011116
  73. IRON [Concomitant]
     Active Substance: IRON
     Indication: Iron deficiency
     Dosage: UNK (DAILY DOSE=1 AMPULE)
     Route: 042
     Dates: end: 20011116
  74. KETAMIN [Concomitant]
     Active Substance: KETAMINE
     Indication: Pain
     Dosage: UNK
     Route: 042
     Dates: start: 20011113, end: 20011117
  75. KONAKION [Concomitant]
     Active Substance: PHYTONADIONE
     Indication: Vitamin K deficiency
     Dosage: 2 MG
     Route: 065
     Dates: end: 20011113
  76. AMINO ACIDS\DEXTROSE\ELECTROLYTES NOS [Concomitant]
     Active Substance: AMINO ACIDS\DEXTROSE\ELECTROLYTES NOS
     Indication: Parenteral nutrition
     Dosage: UNK
     Route: 065
     Dates: end: 20011123
  77. AMINO ACIDS\DEXTROSE\ELECTROLYTES NOS [Concomitant]
     Active Substance: AMINO ACIDS\DEXTROSE\ELECTROLYTES NOS
     Dosage: UNK
     Route: 040
     Dates: end: 20011123
  78. NYSTATIN [Concomitant]
     Active Substance: NYSTATIN
     Indication: Candida infection
     Dosage: UNK (SEVERAL TIMES A DAY
     Route: 065
     Dates: end: 20011202
  79. XYLOMETAZOLINE HYDROCHLORIDE [Concomitant]
     Active Substance: XYLOMETAZOLINE HYDROCHLORIDE
     Dosage: 3 DOSAGE FORM, QD (3 SEPARATED DOSES)
     Route: 045
     Dates: end: 20011130
  80. XYLOMETAZOLINE HYDROCHLORIDE [Concomitant]
     Active Substance: XYLOMETAZOLINE HYDROCHLORIDE
     Indication: Nasopharyngitis
     Dosage: 3 DOSAGE FORM
     Route: 065
     Dates: end: 20011130
  81. PANTOPRAZOLE [Concomitant]
     Active Substance: PANTOPRAZOLE
     Dosage: UNK
     Route: 041
     Dates: end: 20011121
  82. PANTOPRAZOLE [Concomitant]
     Active Substance: PANTOPRAZOLE
     Indication: Prophylaxis against gastrointestinal ulcer
     Dosage: UNK
     Route: 042
     Dates: end: 20011121
  83. PANTOZOL [Concomitant]
     Active Substance: PANTOPRAZOLE SODIUM
     Indication: Prophylaxis against gastrointestinal ulcer
     Dosage: UNK
     Route: 065
     Dates: end: 20011121
  84. PANTOZOL [Concomitant]
     Active Substance: PANTOPRAZOLE SODIUM
     Dosage: UNK
     Route: 040
     Dates: end: 20011121
  85. Paspertin [Concomitant]
     Indication: Nausea
     Dosage: DAILY DOSE=1 AMPULE
     Route: 041
     Dates: start: 20011113, end: 20011117
  86. Paspertin [Concomitant]
     Dosage: UNK (DAILY DOSE 1 AMPULE)
     Route: 040
     Dates: start: 20011113, end: 20011117
  87. POTASSIUM CHLORIDE [Concomitant]
     Active Substance: POTASSIUM CHLORIDE
     Dosage: UNK
     Route: 041
     Dates: end: 20011117
  88. POTASSIUM CHLORIDE [Concomitant]
     Active Substance: POTASSIUM CHLORIDE
     Indication: Metabolic disorder
     Dosage: UNK
     Route: 042
     Dates: end: 20011117
  89. POTASSIUM CHLORIDE [Concomitant]
     Active Substance: POTASSIUM CHLORIDE
     Indication: Metabolic disorder
     Route: 041
     Dates: end: 20011117
  90. Sab simplex [Concomitant]
     Indication: Flatulence
     Dosage: 60 DRP (1/12 MILLILITRE)
     Route: 048
     Dates: end: 20011120
  91. SODIUM CHLORIDE [Concomitant]
     Active Substance: SODIUM CHLORIDE
     Dosage: UNK
     Route: 040
     Dates: end: 20011130
  92. SODIUM CHLORIDE [Concomitant]
     Active Substance: SODIUM CHLORIDE
     Dosage: UNK
     Route: 041
     Dates: end: 20011130
  93. SODIUM CHLORIDE [Concomitant]
     Active Substance: SODIUM CHLORIDE
     Indication: Fluid replacement
     Dosage: UNK
     Route: 042
     Dates: end: 20011130
  94. SODIUM CHLORIDE [Concomitant]
     Active Substance: SODIUM CHLORIDE
     Indication: Fluid replacement
     Route: 041
     Dates: end: 20011130
  95. VANCOMYCIN [Concomitant]
     Active Substance: VANCOMYCIN
     Dosage: 500 MG
     Route: 040
     Dates: end: 20011113
  96. VANCOMYCIN [Concomitant]
     Active Substance: VANCOMYCIN
     Indication: Infection
     Dosage: 500 MG
     Route: 065
     Dates: end: 20011113
  97. VITAMIN B1 [Concomitant]
     Active Substance: THIAMINE HYDROCHLORIDE
     Dosage: UNK (DOSE: REPORTED AS 100. 2 SEPARATED DOSES )
     Route: 040
     Dates: end: 20011126
  98. VITAMIN B1 [Concomitant]
     Active Substance: THIAMINE HYDROCHLORIDE
     Indication: Vitamin B1 deficiency
     Dosage: UNK (DOSE: REPORTED AS 100.)
     Route: 065
     Dates: end: 20011126
  99. Xanef [Concomitant]
     Indication: Cardiac failure
     Dosage: UNK
     Route: 065
     Dates: end: 20011202
  100. CILASTATIN SODIUM\IMIPENEM [Concomitant]
     Active Substance: CILASTATIN SODIUM\IMIPENEM
     Dosage: 1500 MG, QD (3 SEPARATED DOSES)
     Route: 040
     Dates: end: 20011113
  101. CILASTATIN SODIUM\IMIPENEM [Concomitant]
     Active Substance: CILASTATIN SODIUM\IMIPENEM
     Indication: Infection
     Dosage: 1500 MG (3 SEPARATED DOSES)
     Route: 042
     Dates: end: 20011113

REACTIONS (3)
  - Toxic epidermal necrolysis [Recovered/Resolved]
  - Sepsis [Recovered/Resolved]
  - Stevens-Johnson syndrome [Recovered/Resolved]

NARRATIVE: CASE EVENT DATE: 20011128
